FAERS Safety Report 5980276-X (Version None)
Quarter: 2008Q4

REPORT INFORMATION
  Report Type: 
  Country: None (occurrence: None)
  Receive Date: 20081205
  Receipt Date: 20081127
  Transmission Date: 20090506
  Serious: Yes (Other)
  Sender: FDA-Public Use
  Company Number: PHHY2008DE30223

PATIENT
  Sex: Male

DRUGS (1)
  1. EUCREAS [Suspect]

REACTIONS (5)
  - FAECES DISCOLOURED [None]
  - GLYCOSYLATED HAEMOGLOBIN INCREASED [None]
  - HEADACHE [None]
  - HEPATIC PAIN [None]
  - MALAISE [None]
